FAERS Safety Report 15910486 (Version 1)
Quarter: 2019Q1

REPORT INFORMATION
  Report Type: Spontaneous
  Country: US (occurrence: US)
  Receive Date: 20190204
  Receipt Date: 20190204
  Transmission Date: 20190417
  Serious: No
  Sender: FDA-Public Use
  Company Number: US-ABBVIE-18K-163-2319462-00

PATIENT

DRUGS (1)
  1. HUMIRA [Suspect]
     Active Substance: ADALIMUMAB
     Indication: CROHN^S DISEASE
     Route: 058

REACTIONS (8)
  - Enteritis [Unknown]
  - Granuloma [Unknown]
  - Arthritis enteropathic [Unknown]
  - Gastrointestinal inflammation [Unknown]
  - Crohn^s disease [Unknown]
  - Juvenile spondyloarthritis [Unknown]
  - Vasculitis gastrointestinal [Unknown]
  - Gastrointestinal wall thickening [Unknown]
